FAERS Safety Report 7639460-1 (Version None)
Quarter: 2011Q3

REPORT INFORMATION
  Report Type: 
  Country: None (occurrence: None)
  Receive Date: 20110727
  Receipt Date: 20110721
  Transmission Date: 20111222
  Serious: Yes (Death)
  Sender: FDA-Public Use
  Company Number: US-GLAXOSMITHKLINE-A0927028A

PATIENT
  Age: 83 Year
  Sex: Female
  Weight: 47.7 kg

DRUGS (2)
  1. FLUCONAZOLE [Concomitant]
  2. TYKERB [Suspect]
     Indication: NEOPLASM MALIGNANT
     Dosage: 1250MG PER DAY
     Route: 048
     Dates: start: 20110203, end: 20110101

REACTIONS (1)
  - BREAST CANCER METASTATIC [None]
